FAERS Safety Report 18612699 (Version 2)
Quarter: 2020Q4

REPORT INFORMATION
  Report Type: Spontaneous
  Country: FR (occurrence: FR)
  Receive Date: 20201214
  Receipt Date: 20201223
  Transmission Date: 20210114
  Serious: Yes (Hospitalization)
  Sender: FDA-Public Use
  Company Number: FR-FERRINGPH-2020FE08797

PATIENT
  Age: 32 Year
  Sex: Female

DRUGS (4)
  1. SYNAREL [Suspect]
     Active Substance: NAFARELIN ACETATE
     Indication: IN VITRO FERTILISATION
     Dosage: 2 DF
     Route: 045
     Dates: start: 20200925
  2. VISANNE [Suspect]
     Active Substance: DIENOGEST
     Indication: ENDOMETRIOSIS
     Dosage: 2 MG, DAILY
     Route: 048
     Dates: start: 202002, end: 202009
  3. MENOPUR [Suspect]
     Active Substance: FOLLITROPIN\LUTEINIZING HORMONE
     Indication: IN VITRO FERTILISATION
     Dosage: 300 IU, 1 TIME DAILY
     Route: 058
     Dates: start: 20201026, end: 20201105
  4. OVITRELLE [Suspect]
     Active Substance: CHORIOGONADOTROPIN ALFA
     Indication: IN VITRO FERTILISATION
     Dosage: 1 DF
     Route: 058
     Dates: start: 20201014, end: 20201105

REACTIONS (3)
  - Meningioma [Not Recovered/Not Resolved]
  - Condition aggravated [Recovering/Resolving]
  - Epilepsy [Recovered/Resolved]

NARRATIVE: CASE EVENT DATE: 202010
